FAERS Safety Report 5425967-4 (Version None)
Quarter: 2007Q3

REPORT INFORMATION
  Report Type: 
  Country: None (occurrence: None)
  Receive Date: 20070827
  Receipt Date: 20070814
  Transmission Date: 20080115
  Serious: Yes (Hospitalization, Other)
  Sender: FDA-Public Use
  Company Number: US-NOVOPROD-266498

PATIENT
  Age: 61 Year
  Sex: Male

DRUGS (1)
  1. NOVOLIN 70/30 [Suspect]
     Indication: TYPE 1 DIABETES MELLITUS
     Dosage: UNKNOWN
     Route: 058

REACTIONS (3)
  - DIABETIC KETOACIDOSIS [None]
  - IMPAIRED GASTRIC EMPTYING [None]
  - MYOCARDIAL INFARCTION [None]
